FAERS Safety Report 6337970 (Version 4)
Quarter: 2013Q3

REPORT INFORMATION
  Report Type: Spontaneous
  Country: FR (occurrence: None)
  Receive Date: 20070611
  Receipt Date: 20130709
  Transmission Date: 20140515
  Serious: Yes (Hospitalization)
  Sender: FDA-Public Use
  Company Number: 2007000968

PATIENT
  Age: 72 Year
  Sex: Male

DRUGS (3)
  1. TARCEVA (ERLOTINIB HYDROCHLORIDE) TABLET [Suspect]
     Indication: LUNG CANCER METASTATIC
     Route: 048
     Dates: start: 20070206, end: 20070323
  2. TENORMIN [Concomitant]
  3. PRAVASTATIN [Concomitant]

REACTIONS (1)
  - Uveitis [None]
